FAERS Safety Report 14128423 (Version 5)
Quarter: 2017Q4

REPORT INFORMATION
  Report Type: Spontaneous
  Country: CN (occurrence: CN)
  Receive Date: 20171026
  Receipt Date: 20171120
  Transmission Date: 20180321
  Serious: Yes (Death, Hospitalization, Other)
  Sender: FDA-Public Use
  Company Number: CN-B.I. PHARMACEUTICALS,INC./RIDGEFIELD-2017-BI-056964

PATIENT
  Age: 47 Year
  Sex: Male

DRUGS (2)
  1. PRADAXA [Suspect]
     Active Substance: DABIGATRAN ETEXILATE MESYLATE
     Route: 065
     Dates: start: 201705, end: 20171019
  2. PRADAXA [Suspect]
     Active Substance: DABIGATRAN ETEXILATE MESYLATE
     Indication: ATRIAL FIBRILLATION
     Route: 065
     Dates: start: 20171001, end: 20171019

REACTIONS (8)
  - Atrial tachycardia [Unknown]
  - Shock haemorrhagic [Unknown]
  - Product quality issue [Unknown]
  - Atrial fibrillation [Unknown]
  - Gastrointestinal haemorrhage [Fatal]
  - Resuscitation [Unknown]
  - Ventricular fibrillation [Unknown]
  - Supraventricular extrasystoles [Unknown]

NARRATIVE: CASE EVENT DATE: 20171020
